FAERS Safety Report 22251016 (Version 1)
Quarter: 2023Q2

REPORT INFORMATION
  Report Type: Spontaneous
  Country: US (occurrence: None)
  Receive Date: 20230425
  Receipt Date: 20230425
  Transmission Date: 20230722
  Serious: Yes (Hospitalization)
  Sender: FDA-Public Use
  Company Number: None

PATIENT
  Age: 74 Year
  Sex: Female
  Weight: 66.6 kg

DRUGS (3)
  1. ARTIFICIAL TEARS LUBRICANT EYE DROPS (CARBOXYMETHYLCELLULOSE SODIUM) [Suspect]
     Active Substance: CARBOXYMETHYLCELLULOSE SODIUM
     Indication: Dry eye
     Dosage: OTHER QUANTITY : 1 DROP(S);?FREQUENCY : AS NEEDED;?
     Route: 047
     Dates: start: 20221118, end: 20230208
  2. ciprofloxacin hcl 250mg 2x a day [Concomitant]
  3. metronidazole 250mg 3x a day [Concomitant]

REACTIONS (3)
  - Urinary tract infection [None]
  - Sepsis [None]
  - Clostridium difficile infection [None]

NARRATIVE: CASE EVENT DATE: 20221231
